FAERS Safety Report 7740014-7 (Version None)
Quarter: 2011Q3

REPORT INFORMATION
  Report Type: 
  Country: None (occurrence: None)
  Receive Date: 20110906
  Receipt Date: 20110819
  Transmission Date: 20111222
  Serious: Yes (Hospitalization)
  Sender: FDA-Public Use
  Company Number: AUR-APL-2011-04726

PATIENT
  Age: 32 Year
  Sex: Male
  Weight: 100 kg

DRUGS (6)
  1. CEFTRIAXONE [Suspect]
     Indication: SKIN INFECTION
     Dosage: (1 GM), INTRAVENOUS
     Route: 042
     Dates: start: 20110811, end: 20110811
  2. ACETAMINOPHEN [Concomitant]
  3. IBUPROFEN [Concomitant]
  4. DIPYRONE INJ [Concomitant]
  5. TRAMADOL HCL [Concomitant]
  6. METOCLOPRAMIDE [Concomitant]

REACTIONS (4)
  - ERYTHEMA [None]
  - TONSILLITIS [None]
  - ARTHRALGIA [None]
  - SKIN LESION [None]
